FAERS Safety Report 8817036 (Version 1)
Quarter: 2012Q4

REPORT INFORMATION
  Report Type: Spontaneous
  Country: US (occurrence: None)
  Receive Date: 20121003
  Receipt Date: 20121003
  Transmission Date: 20130627
  Serious: Yes (Hospitalization)
  Sender: FDA-Public Use
  Company Number: None

PATIENT
  Sex: Female

DRUGS (2)
  1. SIMPONI [Suspect]
     Indication: RA
     Dosage: 50 mg, q 4 weeks, subcutaneous
     Route: 058
     Dates: start: 201104
  2. SULFASALAZINE [Concomitant]

REACTIONS (4)
  - Hearing impaired [None]
  - Visual acuity reduced [None]
  - Dysphemia [None]
  - Migraine [None]
